FAERS Safety Report 5754018-7 (Version None)
Quarter: 2008Q2

REPORT INFORMATION
  Report Type: 
  Country: None (occurrence: None)
  Receive Date: 20080530
  Receipt Date: 20080526
  Transmission Date: 20081010
  Serious: Yes (Life-Threatening, Hospitalization)
  Sender: FDA-Public Use
  Company Number: JP-BRISTOL-MYERS SQUIBB COMPANY-14131973

PATIENT
  Age: 60 Year
  Sex: Female

DRUGS (6)
  1. PARAPLATIN [Suspect]
     Indication: LUNG ADENOCARCINOMA
     Dosage: ALSO TAKEN 190MGX3/1 MONTH,FROM 28SEP07 TO 2NOV07.
     Route: 041
     Dates: start: 20060904, end: 20070823
  2. TAXOL [Suspect]
     Indication: LUNG ADENOCARCINOMA
     Dosage: ALSO TAKEN FROM 28SEP07 TO 22NOV07(4 DAYS).
     Route: 041
     Dates: start: 20060904, end: 20070823
  3. DECADRON [Suspect]
     Indication: PREMEDICATION
     Dosage: ALSO TAKEN FROM 28SEP07 TO 2NOV07 (4 DAYS).
     Route: 042
     Dates: start: 20060904, end: 20070830
  4. POLARAMINE [Concomitant]
     Route: 041
     Dates: start: 20060904, end: 20070830
  5. FAMOTIDINE [Concomitant]
     Route: 041
     Dates: start: 20060904, end: 20070830
  6. NASEA [Concomitant]
     Route: 041
     Dates: start: 20060904, end: 20070823

REACTIONS (9)
  - CATAPLEXY [None]
  - COLD SWEAT [None]
  - HAEMATURIA [None]
  - HAEMOGLOBIN DECREASED [None]
  - PALLOR [None]
  - PLATELET COUNT DECREASED [None]
  - PORTAL VEIN THROMBOSIS [None]
  - PULMONARY ARTERY THROMBOSIS [None]
  - PULMONARY EMBOLISM [None]
